FAERS Safety Report 11680282 (Version 2)
Quarter: 2015Q4

REPORT INFORMATION
  Report Type: Spontaneous
  Country: US (occurrence: US)
  Receive Date: 20151027
  Receipt Date: 20151104
  Transmission Date: 20160304
  Serious: No
  Sender: FDA-Public Use
  Company Number: US-ELI_LILLY_AND_COMPANY-US201007004816

PATIENT
  Age: 85 Year
  Sex: Female
  Weight: 57.14 kg

DRUGS (9)
  1. FORTEO [Suspect]
     Active Substance: TERIPARATIDE
     Dosage: 20 UG, DAILY (1/D)
     Route: 058
  2. FORTEO [Suspect]
     Active Substance: TERIPARATIDE
     Dosage: 20 UG, DAILY (1/D)
     Route: 058
     Dates: end: 20101206
  3. FORTEO [Suspect]
     Active Substance: TERIPARATIDE
     Dosage: 20 UG, DAILY (1/D)
     Route: 058
  4. CALCIUM [Concomitant]
     Active Substance: CALCIUM
  5. VITAMINS [Concomitant]
     Active Substance: VITAMINS
     Dosage: UNK, DAILY (1/D)
  6. ALBUTEROL. [Concomitant]
     Active Substance: ALBUTEROL
  7. CALCIUM VIT D [Concomitant]
     Dosage: UNK, DAILY (1/D)
  8. FORTEO [Suspect]
     Active Substance: TERIPARATIDE
     Indication: OSTEOPOROSIS
     Dosage: 20 UG, DAILY (1/D)
     Route: 058
     Dates: start: 20100414
  9. ASPIRIN. [Concomitant]
     Active Substance: ASPIRIN
     Dosage: 8 MG, DAILY (1/D)

REACTIONS (8)
  - Hypoaesthesia [Unknown]
  - Muscle spasms [Recovered/Resolved]
  - Intentional product misuse [Unknown]
  - Muscle spasms [Unknown]
  - Affect lability [Unknown]
  - Blood calcium increased [Unknown]
  - Sleep disorder due to a general medical condition [Unknown]
  - Gait disturbance [Recovered/Resolved]

NARRATIVE: CASE EVENT DATE: 20101001
